FAERS Safety Report 16720325 (Version 1)
Quarter: 2019Q3

REPORT INFORMATION
  Report Type: Spontaneous
  Country: US (occurrence: US)
  Receive Date: 20190820
  Receipt Date: 20190820
  Transmission Date: 20191005
  Serious: Yes (Hospitalization, Other)
  Sender: FDA-Public Use
  Company Number: US-MYLANLABS-2019M1076655

PATIENT
  Age: 70 Year
  Sex: Male

DRUGS (13)
  1. JAKAFI [Suspect]
     Active Substance: RUXOLITINIB
     Dosage: 10 MILLIGRAM, BID
     Route: 048
     Dates: start: 20180216
  2. LISINOPRIL. [Concomitant]
     Active Substance: LISINOPRIL
  3. JAKAFI [Suspect]
     Active Substance: RUXOLITINIB
     Indication: POLYCYTHAEMIA VERA
     Dosage: 10 MILLIGRAM, BID
     Route: 048
     Dates: start: 20180216
  4. ASPIRIN. [Concomitant]
     Active Substance: ASPIRIN
  5. JAKAFI [Suspect]
     Active Substance: RUXOLITINIB
     Dosage: 5 MILLIGRAM, BID
     Route: 048
     Dates: start: 20180216
  6. PRAVASTATIN. [Concomitant]
     Active Substance: PRAVASTATIN
  7. PREDNISONE. [Suspect]
     Active Substance: PREDNISONE
     Indication: GOUT
     Dosage: UNK
  8. JAKAFI [Suspect]
     Active Substance: RUXOLITINIB
     Dosage: 10 MILLIGRAM, BID
  9. JAKAFI [Suspect]
     Active Substance: RUXOLITINIB
     Dosage: 10 MILLIGRAM, BID
     Route: 048
     Dates: start: 20180216
  10. JAKAFI [Suspect]
     Active Substance: RUXOLITINIB
     Dosage: 5 MG EVERY MWFSS AND 10 MG TFTH BID
     Route: 048
     Dates: start: 20180213
  11. METOPROLOL. [Concomitant]
     Active Substance: METOPROLOL
  12. ALLOPURINOL. [Concomitant]
     Active Substance: ALLOPURINOL
  13. TOUJEO [Concomitant]
     Active Substance: INSULIN GLARGINE

REACTIONS (9)
  - Cardiac failure congestive [Unknown]
  - Nephrolithiasis [Recovered/Resolved]
  - Platelet count abnormal [Not Recovered/Not Resolved]
  - Gout [Unknown]
  - Weight increased [Unknown]
  - Deafness [Unknown]
  - Blood glucose abnormal [Recovered/Resolved]
  - Splenomegaly [Not Recovered/Not Resolved]
  - Product dose omission [Unknown]

NARRATIVE: CASE EVENT DATE: 201807
